FAERS Safety Report 6580491-0 (Version None)
Quarter: 2010Q1

REPORT INFORMATION
  Report Type: 
  Country: None (occurrence: None)
  Receive Date: 20100212
  Receipt Date: 20100204
  Transmission Date: 20100710
  Serious: Yes (Other)
  Sender: FDA-Public Use
  Company Number: CHPA2010GB02604

PATIENT
  Sex: Female

DRUGS (2)
  1. VOLTAROL THERMAL PATCH (NCH) [Suspect]
     Dosage: UNK, UNK
     Route: 061
  2. VOLTAROL THERMAL PATCH (NCH) [Suspect]
     Dosage: UNK, UNK
     Route: 061
     Dates: start: 20100203, end: 20100201

REACTIONS (3)
  - APPLICATION SITE BURN [None]
  - APPLICATION SITE ERYTHEMA [None]
  - APPLICATION SITE VESICLES [None]
